FAERS Safety Report 12578614 (Version 2)
Quarter: 2017Q1

REPORT INFORMATION
  Report Type: Spontaneous
  Country: PE (occurrence: PE)
  Receive Date: 20160721
  Receipt Date: 20170113
  Transmission Date: 20170428
  Serious: Yes (Other)
  Sender: FDA-Public Use
  Company Number: PE-PFIZER INC-2016257625

PATIENT
  Age: 91 Year
  Sex: Female

DRUGS (2)
  1. XALATAN [Suspect]
     Active Substance: LATANOPROST
     Indication: GLAUCOMA
     Dosage: 1 DROP IN THE LEFT EYE
     Route: 047
     Dates: start: 2009
  2. XALATAN [Suspect]
     Active Substance: LATANOPROST
     Dosage: 1 DROP ON EACH EYE AT NIGHTS
     Route: 047
     Dates: start: 2016

REACTIONS (6)
  - Cataract [Recovered/Resolved]
  - Gait disturbance [Unknown]
  - Pain in extremity [Unknown]
  - Dry eye [Not Recovered/Not Resolved]
  - Ocular discomfort [Recovered/Resolved]
  - Eye irritation [Recovered/Resolved]
